FAERS Safety Report 10461891 (Version 1)
Quarter: 2014Q3

REPORT INFORMATION
  Report Type: Spontaneous
  Country: US (occurrence: US)
  Receive Date: 20140918
  Receipt Date: 20140918
  Transmission Date: 20150326
  Serious: Yes (Other)
  Sender: FDA-Public Use
  Company Number: US-ABBVIE-14K-163-1283429-00

PATIENT
  Age: 22 Year
  Sex: Female

DRUGS (1)
  1. HUMIRA [Suspect]
     Active Substance: ADALIMUMAB
     Indication: COLITIS ULCERATIVE
     Route: 058
     Dates: start: 201406, end: 201406

REACTIONS (9)
  - Inappropriate affect [Unknown]
  - Paralysis [Not Recovered/Not Resolved]
  - Brain injury [Not Recovered/Not Resolved]
  - Electrocardiogram abnormal [Unknown]
  - Visual impairment [Unknown]
  - Burning sensation [Unknown]
  - Myocardial infarction [Unknown]
  - Hemiparesis [Unknown]
  - Hypereosinophilic syndrome [Unknown]

NARRATIVE: CASE EVENT DATE: 201406
